FAERS Safety Report 5794147-5 (Version None)
Quarter: 2008Q2

REPORT INFORMATION
  Report Type: 
  Country: None (occurrence: None)
  Receive Date: 20080627
  Receipt Date: 20080618
  Transmission Date: 20081010
  Serious: Yes (Other)
  Sender: FDA-Public Use
  Company Number: US-MERCK-0805USA02914

PATIENT
  Age: 73 Year
  Sex: Female
  Weight: 84 kg

DRUGS (8)
  1. SINGULAIR [Suspect]
     Indication: SEASONAL ALLERGY
     Route: 048
     Dates: start: 20070901, end: 20080327
  2. SINGULAIR [Suspect]
     Route: 048
     Dates: start: 20070601, end: 20070601
  3. PROVENTIL-HFA [Concomitant]
     Indication: ASTHMA
  4. PROVENTIL-HFA [Concomitant]
     Indication: ASBESTOSIS
  5. HYDROCHLOROTHIAZIDE [Concomitant]
     Indication: HYPERTENSION
     Route: 048
  6. METFORMIN [Concomitant]
     Indication: DIABETES MELLITUS
     Route: 048
  7. SYNTHROID [Concomitant]
     Indication: HYPOTHYROIDISM
     Route: 048
  8. MIRAPEX [Concomitant]
     Indication: RESTLESS LEGS SYNDROME
     Route: 048

REACTIONS (9)
  - ABNORMAL BEHAVIOUR [None]
  - ANXIETY [None]
  - DEPRESSION [None]
  - DISSOCIATION [None]
  - FEELING ABNORMAL [None]
  - HYPERPHAGIA [None]
  - PAIN IN EXTREMITY [None]
  - SELF ESTEEM DECREASED [None]
  - SUICIDAL IDEATION [None]
